FAERS Safety Report 22186220 (Version 1)
Quarter: 2023Q2

REPORT INFORMATION
  Report Type: Spontaneous
  Country: US (occurrence: US)
  Receive Date: 20230407
  Receipt Date: 20230407
  Transmission Date: 20230721
  Serious: No
  Sender: FDA-Public Use
  Company Number: US-GSKCCFUS-Case-01666152_AE-94040

PATIENT
  Sex: Female

DRUGS (2)
  1. BENLYSTA [Suspect]
     Active Substance: BELIMUMAB
     Indication: Product used for unknown indication
     Dosage: UNK
     Dates: start: 2018
  2. INFLUENZA VIRUS VACCINE [Suspect]
     Active Substance: INFLUENZA VIRUS VACCINE
     Indication: Product used for unknown indication
     Dosage: UNK

REACTIONS (5)
  - Vomiting [Unknown]
  - Nausea [Recovered/Resolved]
  - Gastrointestinal disorder [Unknown]
  - Wrong technique in device usage process [Unknown]
  - Product dose omission issue [Unknown]
